FAERS Safety Report 10558809 (Version 2)
Quarter: 2014Q4

REPORT INFORMATION
  Report Type: Spontaneous
  Country: IN (occurrence: IN)
  Receive Date: 20141031
  Receipt Date: 20141107
  Transmission Date: 20150529
  Serious: Yes (Other)
  Sender: FDA-Public Use
  Company Number: IN-ABBVIE-14P-078-1302709-00

PATIENT
  Age: 22 Year
  Sex: Male

DRUGS (3)
  1. CHLORPROMAZINE [Concomitant]
     Active Substance: CHLORPROMAZINE
     Indication: PRODUCT USED FOR UNKNOWN INDICATION
  2. QUETIAPINE FUMARATE. [Suspect]
     Active Substance: QUETIAPINE FUMARATE
     Indication: SLEEP DISORDER
     Route: 048
  3. VALPROATE SODIUM. [Suspect]
     Active Substance: VALPROATE SODIUM
     Indication: IRRITABILITY
     Route: 065

REACTIONS (5)
  - Drug withdrawal syndrome [Unknown]
  - Feeling abnormal [Unknown]
  - Agitation [Unknown]
  - Drug ineffective [Unknown]
  - Drug abuse [Unknown]
